FAERS Safety Report 6830750-9 (Version None)
Quarter: 2010Q3

REPORT INFORMATION
  Report Type: 
  Country: None (occurrence: None)
  Receive Date: 20100712
  Receipt Date: 20100628
  Transmission Date: 20110219
  Serious: Yes (Other)
  Sender: FDA-Public Use
  Company Number: PHHY2010GB11007

PATIENT
  Sex: Female
  Weight: 59 kg

DRUGS (3)
  1. LESCOL [Suspect]
     Indication: BLOOD CHOLESTEROL INCREASED
     Dosage: 80 MG/ DAY
     Route: 048
     Dates: start: 20040401, end: 20100212
  2. LESCOL [Suspect]
     Dosage: 40 MG, QD
     Route: 048
  3. EZETIMIBE [Concomitant]
     Dosage: QD
     Route: 048
     Dates: start: 20070101

REACTIONS (5)
  - AMNESIA [None]
  - BURNING SENSATION [None]
  - DEPRESSION [None]
  - INSOMNIA [None]
  - PAIN IN EXTREMITY [None]
